FAERS Safety Report 5009601-3 (Version None)
Quarter: 2006Q2

REPORT INFORMATION
  Report Type: 
  Country: None (occurrence: None)
  Receive Date: 20060524
  Receipt Date: 20060517
  Transmission Date: 20061013
  Serious: Yes (Hospitalization)
  Sender: FDA-Public Use
  Company Number: US-JNJFOC-20060504333

PATIENT
  Sex: Female
  Weight: 72.58 kg

DRUGS (7)
  1. FENTANYL TRANSDERMAL SYSTEM [Suspect]
     Route: 062
  2. WELLBUTRIN XL [Concomitant]
     Indication: DEPRESSION
     Route: 048
  3. GABITRIL [Concomitant]
     Indication: MIGRAINE
     Route: 048
  4. GABITRIL [Concomitant]
     Indication: DEPRESSION
     Route: 048
  5. REMERON [Concomitant]
     Indication: DEPRESSION
     Route: 048
  6. SEROQUEL [Concomitant]
     Route: 048
  7. KLONOPIN [Concomitant]
     Indication: ANXIETY
     Route: 048

REACTIONS (1)
  - DELUSION [None]
